FAERS Safety Report 19674308 (Version 2)
Quarter: 2021Q3

REPORT INFORMATION
  Report Type: Spontaneous
  Country: BG (occurrence: BG)
  Receive Date: 20210809
  Receipt Date: 20210816
  Transmission Date: 20211014
  Serious: Yes (Other)
  Sender: FDA-Public Use
  Company Number: BG-CELLTRION INC.-2021BG010372

PATIENT

DRUGS (6)
  1. TRASTUZUMAB (UNKNOWN) [Suspect]
     Active Substance: TRASTUZUMAB
     Indication: HER2 NEGATIVE BREAST CANCER
     Dosage: UNK UNK, QCY
  2. DOCETAXEL. [Suspect]
     Active Substance: DOCETAXEL
     Indication: HER2 NEGATIVE BREAST CANCER
     Dosage: UNK UNK, QCY
  3. EPIRUBICIN [Suspect]
     Active Substance: EPIRUBICIN
     Indication: HER2 NEGATIVE BREAST CANCER
  4. CYCLOPHOSPHAMIDE. [Suspect]
     Active Substance: CYCLOPHOSPHAMIDE
     Indication: HER2 NEGATIVE BREAST CANCER
  5. PERTUZUMAB. [Suspect]
     Active Substance: PERTUZUMAB
     Indication: HER2 NEGATIVE BREAST CANCER
     Dosage: UNK UNK, QCY
  6. 5?FLUOROURACIL [FLUOROURACIL] [Suspect]
     Active Substance: FLUOROURACIL
     Indication: HER2 NEGATIVE BREAST CANCER

REACTIONS (5)
  - Off label use [Unknown]
  - Therapeutic response decreased [Unknown]
  - Metastases to lymph nodes [Unknown]
  - Pulmonary mass [Unknown]
  - Metastases to liver [Unknown]
